FAERS Safety Report 5086881-X (Version None)
Quarter: 2006Q3

REPORT INFORMATION
  Report Type: 
  Country: None (occurrence: None)
  Receive Date: 20060823
  Receipt Date: 20041108
  Transmission Date: 20061208
  Serious: Yes (Hospitalization, Other)
  Sender: FDA-Public Use
  Company Number: US-MERCK-0411USA01425

PATIENT
  Age: 77 Year
  Sex: Male
  Weight: 71 kg

DRUGS (17)
  1. ZETIA [Suspect]
     Indication: HYPERCHOLESTEROLAEMIA
     Route: 048
     Dates: start: 20021201, end: 20051201
  2. ZETIA [Suspect]
     Indication: BLOOD CHOLESTEROL INCREASED
     Route: 048
     Dates: start: 20021201, end: 20051201
  3. GLUCOVANCE [Concomitant]
     Route: 065
  4. COZAAR [Concomitant]
     Route: 048
  5. LUMIGAN [Concomitant]
     Route: 065
  6. GLYBURIDE [Concomitant]
     Route: 065
  7. LUPRON [Concomitant]
     Route: 065
  8. FOSAMAX [Concomitant]
     Route: 048
  9. ASPIRIN [Concomitant]
     Route: 065
  10. HERBS (UNSPECIFIED) [Concomitant]
     Indication: BLOOD CHOLESTEROL INCREASED
     Route: 065
  11. VITAMINS (UNSPECIFIED) [Concomitant]
     Route: 065
  12. DOCUSATE SODIUM [Concomitant]
     Route: 065
  13. NAMENDA [Suspect]
     Indication: DEMENTIA
     Route: 048
     Dates: start: 20030101, end: 20030101
  14. NAMENDA [Suspect]
     Route: 048
     Dates: start: 20030101, end: 20030101
  15. NAMENDA [Suspect]
     Route: 065
     Dates: start: 20030101, end: 20030101
  16. NAMENDA [Suspect]
     Route: 065
     Dates: start: 20030101, end: 20060413
  17. NAMENDA [Suspect]
     Route: 065
     Dates: start: 20060613

REACTIONS (25)
  - ADVERSE EVENT [None]
  - ASTHENIA [None]
  - ATRIAL FIBRILLATION [None]
  - CARDIAC DISORDER [None]
  - COGNITIVE DISORDER [None]
  - CONFUSIONAL STATE [None]
  - DISORIENTATION [None]
  - DIZZINESS [None]
  - DYSARTHRIA [None]
  - FALL [None]
  - FATIGUE [None]
  - GAIT DISTURBANCE [None]
  - HEART RATE IRREGULAR [None]
  - HIP FRACTURE [None]
  - MEMORY IMPAIRMENT [None]
  - MENTAL STATUS CHANGES [None]
  - MUSCULAR WEAKNESS [None]
  - NAUSEA [None]
  - RIB FRACTURE [None]
  - SOMNOLENCE [None]
  - SPEECH DISORDER [None]
  - TACHYCARDIA [None]
  - UPPER LIMB FRACTURE [None]
  - URINARY TRACT INFECTION [None]
  - WRIST FRACTURE [None]
